FAERS Safety Report 23663400 (Version 1)
Quarter: 2024Q1

REPORT INFORMATION
  Report Type: Spontaneous
  Country: US (occurrence: None)
  Receive Date: 20240321
  Receipt Date: 20240321
  Transmission Date: 20240410
  Serious: Yes (Other)
  Sender: FDA-Public Use
  Company Number: None

PATIENT
  Age: 57 Year
  Sex: Male
  Weight: 72.1 kg

DRUGS (6)
  1. CABOTEGRAVIR\RILPIVIRINE [Suspect]
     Active Substance: CABOTEGRAVIR\RILPIVIRINE
     Indication: Prophylaxis against HIV infection
     Dosage: 6 ML ONCE ONCE INTRAMUSCULAR
     Route: 030
     Dates: start: 20240312, end: 20240312
  2. LINEZOLID [Concomitant]
  3. ALPRAZOLAM [Concomitant]
     Dates: start: 20240307
  4. DOXYCYCLINE [Concomitant]
     Dates: start: 20240227
  5. EVOLOCUMAB [Concomitant]
     Dates: start: 20240207
  6. MELOXICAM [Concomitant]
     Dates: start: 20230419

REACTIONS (2)
  - Product selection error [None]
  - Wrong product administered [None]

NARRATIVE: CASE EVENT DATE: 20240312
